FAERS Safety Report 22285764 (Version 1)
Quarter: 2023Q2

REPORT INFORMATION
  Report Type: Report from Study
  Country: DE (occurrence: DE)
  Receive Date: 20230504
  Receipt Date: 20230504
  Transmission Date: 20230722
  Serious: Yes (Death, Hospitalization, Disabling)
  Sender: FDA-Public Use
  Company Number: DE-CELLTRION INC.-2023DE009283

PATIENT

DRUGS (7)
  1. RITUXIMAB [Suspect]
     Active Substance: RITUXIMAB
     Indication: Rheumatoid arthritis
     Dosage: 500 MG
     Dates: start: 202107
  2. RITUXIMAB [Suspect]
     Active Substance: RITUXIMAB
     Dosage: 500 MG; SUBSEQUENT DOSE ON MAY/2018 500 MG, NOV/2018 500 MG, OCT/2020 500 MG
     Route: 042
     Dates: start: 201712
  3. RITUXIMAB [Suspect]
     Active Substance: RITUXIMAB
     Dosage: 1000 MG; SUBSEQUENT DOSE ON APR/2019 1000 MG, APR/2020 1000 MG
     Route: 042
     Dates: start: 201705
  4. RITUXIMAB [Suspect]
     Active Substance: RITUXIMAB
     Dosage: 1000 MG; SUBSEQUENT DOSE ON APR/2019 1000 MG, APR/2020 1000 MG
     Route: 042
     Dates: start: 201611
  5. TOCILIZUMAB [Suspect]
     Active Substance: TOCILIZUMAB
     Indication: Rheumatoid arthritis
     Dosage: 168 MG; DOSE FORM: PRE-FILLED SYRINGE
     Route: 058
     Dates: start: 20160614
  6. TOCILIZUMAB [Suspect]
     Active Substance: TOCILIZUMAB
     Dosage: 162 MG; DOSE FORM: PRE-FILLED SYRINGE
     Route: 058
     Dates: start: 201602, end: 201606
  7. PREDNISOLONE [Concomitant]
     Active Substance: PREDNISOLONE

REACTIONS (5)
  - Death [Fatal]
  - Diarrhoea [Recovered/Resolved]
  - Anal abscess [Not Recovered/Not Resolved]
  - Flatulence [Unknown]
  - Underdose [Unknown]

NARRATIVE: CASE EVENT DATE: 20160322
